FAERS Safety Report 24856854 (Version 1)
Quarter: 2025Q1

REPORT INFORMATION
  Report Type: Spontaneous
  Country: US (occurrence: None)
  Receive Date: 20250116
  Receipt Date: 20250116
  Transmission Date: 20250409
  Serious: No
  Sender: FDA-CTU
  Company Number: None

PATIENT
  Age: 14 Year
  Sex: Female
  Weight: 68 kg

DRUGS (2)
  1. VENTOLIN HFA [Suspect]
     Active Substance: ALBUTEROL SULFATE
     Indication: Asthma
     Dosage: FREQUENCY : 4 TIMES A DAY;?
     Route: 055
     Dates: start: 20250109, end: 20250113
  2. VENTOLIN HFA [Concomitant]
     Active Substance: ALBUTEROL SULFATE
     Dates: start: 20250109

REACTIONS (1)
  - Dizziness [None]

NARRATIVE: CASE EVENT DATE: 20250109
